FAERS Safety Report 6237320-4 (Version None)
Quarter: 2009Q2

REPORT INFORMATION
  Report Type: 
  Country: None (occurrence: None)
  Receive Date: 20090619
  Receipt Date: 20090616
  Transmission Date: 20091009
  Serious: Yes (Death)
  Sender: FDA-Public Use
  Company Number: US-CELGENEUS-163-21880-09060184

PATIENT
  Sex: Male

DRUGS (1)
  1. REVLIMID [Suspect]
     Indication: MULTIPLE MYELOMA
     Route: 048
     Dates: start: 20090401, end: 20090507

REACTIONS (6)
  - AGITATION [None]
  - DYSPNOEA [None]
  - HYPOXIA [None]
  - LUNG INFILTRATION [None]
  - PAIN [None]
  - RESPIRATORY FAILURE [None]
